FAERS Safety Report 9948824 (Version 2)
Quarter: 2014Q1

REPORT INFORMATION
  Report Type: Spontaneous
  Country: US (occurrence: US)
  Receive Date: 20140304
  Receipt Date: 20140304
  Transmission Date: 20141002
  Serious: Yes (Other)
  Sender: FDA-Public Use
  Company Number: US-AMGEN-USASP2014006451

PATIENT
  Age: 66 Year
  Sex: Female
  Weight: 70 kg

DRUGS (3)
  1. SENSIPAR [Suspect]
     Indication: HYPERPARATHYROIDISM SECONDARY
     Dosage: 180 MG, QD
     Route: 048
     Dates: start: 20080630
  2. RENVELA [Concomitant]
     Indication: HYPERPHOSPHATAEMIA
     Dosage: 2 UNK, TID, 800 MG
     Route: 048
  3. HECTOROL [Concomitant]
     Indication: HYPERPARATHYROIDISM SECONDARY
     Dosage: 4 MUG, Q3WK
     Route: 042

REACTIONS (4)
  - Mental retardation [Unknown]
  - Speech disorder [Unknown]
  - Nausea [Recovering/Resolving]
  - Vomiting [Recovering/Resolving]
